FAERS Safety Report 13612441 (Version 2)
Quarter: 2017Q2

REPORT INFORMATION
  Report Type: Spontaneous
  Country: IT (occurrence: IT)
  Receive Date: 20170605
  Receipt Date: 20170613
  Transmission Date: 20170830
  Serious: Yes (Hospitalization)
  Sender: FDA-Public Use
  Company Number: IT-PFIZER INC-2017242726

PATIENT
  Age: 42 Year
  Sex: Female

DRUGS (4)
  1. EFEXOR [Concomitant]
     Active Substance: VENLAFAXINE HYDROCHLORIDE
     Dosage: 75 MG, UNK
  2. LORAZEPAM. [Suspect]
     Active Substance: LORAZEPAM
     Indication: ANXIETY
     Dosage: 50 MG, TOTAL FOR 1 DAY
     Route: 048
  3. QUETIAPINA TEVA [Concomitant]
     Active Substance: QUETIAPINE
     Dosage: 200 MG, UNK
  4. TRANQUIRIT [Concomitant]
     Active Substance: DIAZEPAM

REACTIONS (5)
  - Speech disorder [Recovered/Resolved]
  - Sopor [Recovered/Resolved]
  - Toxicity to various agents [Recovered/Resolved]
  - Drug use disorder [Recovered/Resolved]
  - Overdose [Recovered/Resolved]

NARRATIVE: CASE EVENT DATE: 20170304
